FAERS Safety Report 8369746-7 (Version None)
Quarter: 2012Q2

REPORT INFORMATION
  Report Type: 
  Country: None (occurrence: None)
  Receive Date: 20120518
  Receipt Date: 20120507
  Transmission Date: 20120825
  Serious: Yes (Death)
  Sender: FDA-Public Use
  Company Number: US-SANOFI-AVENTIS-2012SA032319

PATIENT
  Sex: Male

DRUGS (2)
  1. ELOXATIN [Suspect]
     Route: 041
  2. ELOXATIN [Suspect]
     Route: 041

REACTIONS (2)
  - TRAUMATIC LUNG INJURY [None]
  - ORGAN FAILURE [None]
